FAERS Safety Report 20183365 (Version 1)
Quarter: 2021Q4

REPORT INFORMATION
  Report Type: Spontaneous
  Country: US (occurrence: US)
  Receive Date: 20211214
  Receipt Date: 20211214
  Transmission Date: 20220303
  Serious: Yes (Other)
  Sender: FDA-Public Use
  Company Number: US-ABBVIE-21K-163-4140607-00

PATIENT
  Sex: Female

DRUGS (1)
  1. IMBRUVICA [Suspect]
     Active Substance: IBRUTINIB
     Indication: Mantle cell lymphoma
     Route: 048

REACTIONS (6)
  - Non-Hodgkin^s lymphoma [Unknown]
  - Lethargy [Unknown]
  - Asthenia [Unknown]
  - Pain [Unknown]
  - Myalgia [Unknown]
  - Memory impairment [Unknown]
